FAERS Safety Report 8299623-1 (Version None)
Quarter: 2012Q2

REPORT INFORMATION
  Report Type: 
  Country: None (occurrence: None)
  Receive Date: 20120419
  Receipt Date: 20120214
  Transmission Date: 20120825
  Serious: Yes (Hospitalization)
  Sender: FDA-Public Use
  Company Number: JP-GLAXOSMITHKLINE-B0782258A

PATIENT
  Sex: Female

DRUGS (4)
  1. LOXONIN [Concomitant]
     Indication: PAIN
     Dosage: 60MG PER DAY
     Route: 048
     Dates: start: 20110616, end: 20110622
  2. VITAMIN B12 [Concomitant]
     Indication: PAIN
     Dosage: 1500MCG PER DAY
     Route: 048
     Dates: start: 20110616
  3. PAXIL [Suspect]
     Indication: PAIN
     Dosage: 20MG PER DAY
     Route: 048
     Dates: start: 20110616, end: 20110626
  4. VICCLOX [Concomitant]
     Indication: HERPES ZOSTER
     Dosage: 750MG PER DAY
     Route: 042
     Dates: start: 20110616, end: 20110624

REACTIONS (7)
  - MUSCULAR WEAKNESS [None]
  - URINARY RETENTION [None]
  - MALAISE [None]
  - INAPPROPRIATE ANTIDIURETIC HORMONE SECRETION [None]
  - HYPONATRAEMIA [None]
  - ALTERED STATE OF CONSCIOUSNESS [None]
  - OFF LABEL USE [None]
